FAERS Safety Report 6891818-4 (Version None)
Quarter: 2010Q3

REPORT INFORMATION
  Report Type: 
  Country: None (occurrence: None)
  Receive Date: 20100731
  Receipt Date: 20071022
  Transmission Date: 20110219
  Serious: No
  Sender: FDA-Public Use
  Company Number: US-PFIZER INC-2007085117

PATIENT
  Sex: Male
  Weight: 122.47 kg

DRUGS (11)
  1. NEURONTIN [Suspect]
     Indication: DIABETIC NEUROPATHY
  2. METFORMIN HCL [Concomitant]
  3. ALL OTHER THERAPEUTIC PRODUCTS [Concomitant]
  4. GLYBURIDE [Concomitant]
  5. ZETIA [Concomitant]
     Dosage: DAILY
  6. LOVASTATIN [Concomitant]
  7. DILTIAZEM [Concomitant]
  8. WARFARIN SODIUM [Concomitant]
  9. TORSEMIDE [Concomitant]
  10. ALL OTHER THERAPEUTIC PRODUCTS [Concomitant]
  11. BETAGAN [Concomitant]

REACTIONS (1)
  - PAIN [None]
